FAERS Safety Report 6726013-2 (Version None)
Quarter: 2010Q2

REPORT INFORMATION
  Report Type: 
  Country: None (occurrence: None)
  Receive Date: 20100514
  Receipt Date: 20100506
  Transmission Date: 20101027
  Serious: Yes (Hospitalization, Other)
  Sender: FDA-Public Use
  Company Number: GR-PFIZER INC-2010057626

PATIENT
  Age: 42 Year
  Sex: Female

DRUGS (1)
  1. METHYLPREDNISOLONE [Suspect]
     Indication: LYMPHOCYTIC HYPOPHYSITIS
     Dosage: 48 MG DAILY
     Route: 065

REACTIONS (3)
  - CONDITION AGGRAVATED [None]
  - CUSHING'S SYNDROME [None]
  - HYPOPHYSITIS [None]
